FAERS Safety Report 6241686-9 (Version None)
Quarter: 2009Q2

REPORT INFORMATION
  Report Type: 
  Country: None (occurrence: None)
  Receive Date: 20090623
  Receipt Date: 20090611
  Transmission Date: 20091009
  Serious: Yes (Hospitalization)
  Sender: FDA-Public Use
  Company Number: US-ELI_LILLY_AND_COMPANY-US200610001536

PATIENT
  Sex: Male
  Weight: 71.201 kg

DRUGS (6)
  1. ZYPREXA [Suspect]
     Dosage: UNK, UNKNOWN
     Dates: start: 19990101, end: 20040101
  2. ZIPRASIDONE HCL [Concomitant]
     Dosage: UNK, UNKNOWN
     Dates: start: 20040601
  3. NORVASC [Concomitant]
     Indication: HYPERTENSION
  4. ENALAPRIL [Concomitant]
     Dosage: 20 MG, DAILY (1/D)
  5. BENZTROPINE [Concomitant]
  6. FUROSEMIDE                         /00032601/ [Concomitant]

REACTIONS (5)
  - CEREBROVASCULAR ACCIDENT [None]
  - DIABETES MELLITUS [None]
  - HAEMATOCRIT DECREASED [None]
  - HAEMOGLOBIN DECREASED [None]
  - PLATELET COUNT INCREASED [None]
